FAERS Safety Report 6045387-1 (Version None)
Quarter: 2009Q1

REPORT INFORMATION
  Report Type: 
  Country: None (occurrence: None)
  Receive Date: 20090121
  Receipt Date: 20090115
  Transmission Date: 20090719
  Serious: No
  Sender: FDA-Public Use
  Company Number: US-JNJFOC-20090104024

PATIENT
  Sex: Male

DRUGS (12)
  1. FENTANYL TRANSDERMAL SYSTEM [Suspect]
     Indication: BACK PAIN
     Route: 062
  2. DURAGESIC-100 [Suspect]
     Route: 062
  3. DURAGESIC-100 [Suspect]
     Route: 062
  4. DURAGESIC-100 [Suspect]
     Route: 062
  5. DURAGESIC-100 [Suspect]
     Indication: BACK PAIN
     Route: 062
  6. VICODIN [Concomitant]
     Indication: PAIN
     Route: 048
  7. LODINE [Concomitant]
     Indication: ANTIINFLAMMATORY THERAPY
     Route: 048
  8. REMERON [Concomitant]
     Indication: ANTIDEPRESSANT THERAPY
     Route: 048
  9. NEURONTIN [Concomitant]
     Indication: NEURALGIA
     Route: 048
  10. EFFEXOR [Concomitant]
     Indication: ANTIDEPRESSANT THERAPY
     Dosage: DAILY
     Route: 048
  11. AMBIEN [Concomitant]
     Indication: SLEEP DISORDER THERAPY
     Dosage: DOSE: 1 AT BED TIME AND 1 AT 3.00 AM.
     Route: 048
  12. SOMA [Concomitant]
     Indication: SLEEP DISORDER THERAPY
     Route: 048

REACTIONS (7)
  - BACK DISORDER [None]
  - BACK INJURY [None]
  - DRUG INEFFECTIVE [None]
  - DRUG PRESCRIBING ERROR [None]
  - INAPPROPRIATE SCHEDULE OF DRUG ADMINISTRATION [None]
  - ROTATOR CUFF SYNDROME [None]
  - WEIGHT DECREASED [None]
